FAERS Safety Report 4413564-9 (Version None)
Quarter: 2004Q3

REPORT INFORMATION
  Report Type: 
  Country: None (occurrence: None)
  Receive Date: 20040729
  Receipt Date: 20040713
  Transmission Date: 20050211
  Serious: Yes (Hospitalization)
  Sender: FDA-Public Use
  Company Number: B0339617A

PATIENT
  Age: 68 Year
  Sex: Female

DRUGS (7)
  1. LITHIUM SALT (LITHIUM SALT) [Suspect]
     Dosage: 200 MG /TWICE PER DAY
  2. ROFECOXIB [Suspect]
     Dosage: 25 MG/TWICE PER DAY
  3. CARBAMAZEPINE [Concomitant]
  4. PIMPAMPERONE [Concomitant]
  5. MIRTAZAPINE [Concomitant]
  6. PROPRANOLOL HYDROCHLORIDE [Concomitant]
  7. PARACETAMOL [Concomitant]

REACTIONS (14)
  - ATRIOVENTRICULAR BLOCK COMPLETE [None]
  - BLOOD PRESSURE DIASTOLIC DECREASED [None]
  - BLOOD PRESSURE INCREASED [None]
  - DRUG TOXICITY [None]
  - DYSARTHRIA [None]
  - ELECTROCARDIOGRAM T WAVE INVERSION [None]
  - EXTRAPYRAMIDAL DISORDER [None]
  - HEADACHE [None]
  - NAUSEA [None]
  - PAIN IN EXTREMITY [None]
  - SINUS ARREST [None]
  - SINUS BRADYCARDIA [None]
  - SOMNOLENCE [None]
  - VOMITING [None]
